FAERS Safety Report 5657655-3 (Version None)
Quarter: 2008Q1

REPORT INFORMATION
  Report Type: 
  Country: None (occurrence: None)
  Receive Date: 20080305
  Receipt Date: 20080219
  Transmission Date: 20080703
  Serious: Yes (Hospitalization)
  Sender: FDA-Public Use
  Company Number: RENA-1000022

PATIENT
  Age: 46 Year
  Sex: Male

DRUGS (4)
  1. RENAGEL [Suspect]
     Indication: HYPERPHOSPHATAEMIA
     Dosage: 1 G, TID, ORAL
     Route: 048
     Dates: end: 20071219
  2. WARFARIN POTASSIUM (WARFARIN POTASSIUM) [Concomitant]
  3. CALTAN (CALCIUM CARBONATE) [Concomitant]
  4. ALLOPURINOL [Concomitant]

REACTIONS (2)
  - DIVERTICULAR PERFORATION [None]
  - PERITONITIS [None]
